FAERS Safety Report 6037562-7 (Version None)
Quarter: 2009Q1

REPORT INFORMATION
  Report Type: 
  Country: None (occurrence: None)
  Receive Date: 20090113
  Receipt Date: 20080109
  Transmission Date: 20090719
  Serious: Yes (Hospitalization)
  Sender: FDA-Public Use
  Company Number: A0762976A

PATIENT
  Sex: Female

DRUGS (1)
  1. METHYLCELLULOSE (FORMULATION UNKNOWN) (METHYLCELLULOSE) [Suspect]

REACTIONS (2)
  - CHOKING [None]
  - OESOPHAGEAL DISORDER [None]
